FAERS Safety Report 6626035-6 (Version None)
Quarter: 2010Q1

REPORT INFORMATION
  Report Type: 
  Country: None (occurrence: None)
  Receive Date: 20100310
  Receipt Date: 20090320
  Transmission Date: 20100710
  Serious: Yes (Hospitalization)
  Sender: FDA-Public Use
  Company Number: CA-SANOFI-AVENTIS-F01200900136

PATIENT
  Age: 39 Year
  Sex: Female
  Weight: 54.5 kg

DRUGS (8)
  1. OXALIPLATIN [Suspect]
     Indication: COLORECTAL CANCER
     Route: 041
     Dates: start: 20081007, end: 20081007
  2. OXALIPLATIN [Suspect]
     Route: 041
     Dates: start: 20080909, end: 20080909
  3. XELODA [Suspect]
     Indication: COLORECTAL CANCER
     Dosage: DOSE TEXT: BID
     Route: 048
     Dates: start: 20081007, end: 20081013
  4. XELODA [Suspect]
     Route: 048
     Dates: start: 20080909
  5. AVASTIN [Suspect]
     Indication: COLORECTAL CANCER
     Route: 041
     Dates: start: 20081007, end: 20081007
  6. AVASTIN [Suspect]
     Route: 041
     Dates: start: 20080826, end: 20080826
  7. ALL OTHER THERAPEUTIC PRODUCTS [Suspect]
     Indication: COLORECTAL CANCER
     Dates: start: 20080909, end: 20081017
  8. ACETAMINOPHEN AND TRAMADOL HCL [Concomitant]
     Dosage: DOSE TEXT: 37.5 MG/ 325 MG
     Route: 048
     Dates: start: 20081231, end: 20090109

REACTIONS (1)
  - WOUND DEHISCENCE [None]
